FAERS Safety Report 7002337-9 (Version None)
Quarter: 2010Q3

REPORT INFORMATION
  Report Type: 
  Country: None (occurrence: None)
  Receive Date: 20100920
  Receipt Date: 20070503
  Transmission Date: 20110219
  Serious: No
  Sender: FDA-Public Use
  Company Number: US-ASTRAZENECA-2006UW11841

PATIENT
  Age: 19036 Day
  Sex: Female
  Weight: 59 kg

DRUGS (8)
  1. SEROQUEL [Suspect]
     Route: 048
     Dates: start: 20000405
  2. SEROQUEL [Suspect]
     Dosage: 25 MG, 50 MG
     Route: 048
     Dates: end: 20010201
  3. ZYPREXA [Suspect]
     Dates: end: 19991201
  4. RISPERDAL [Suspect]
     Dates: end: 20011201
  5. ABILIFY [Concomitant]
     Dates: start: 20030701
  6. GEODON [Concomitant]
  7. WELLBUTRIN [Concomitant]
     Dates: start: 20000405
  8. DEPAKOTE [Concomitant]
     Dates: start: 20000405

REACTIONS (5)
  - BIPOLAR DISORDER [None]
  - BIPOLAR I DISORDER [None]
  - DEPRESSION [None]
  - DIABETES MELLITUS [None]
  - TYPE 2 DIABETES MELLITUS [None]
